FAERS Safety Report 8300971-7 (Version None)
Quarter: 2012Q2

REPORT INFORMATION
  Report Type: 
  Country: None (occurrence: None)
  Receive Date: 20120420
  Receipt Date: 20120411
  Transmission Date: 20120825
  Serious: Yes (Other)
  Sender: FDA-Public Use
  Company Number: GB-BRISTOL-MYERS SQUIBB COMPANY-16502205

PATIENT
  Age: 67 Year
  Sex: Male

DRUGS (4)
  1. AMOXICILLIN [Suspect]
  2. BLINDED: PLACEBO [Suspect]
     Indication: TYPE 2 DIABETES MELLITUS
     Dates: start: 20101006
  3. BLINDED: SAXAGLIPTIN [Suspect]
     Indication: TYPE 2 DIABETES MELLITUS
     Dates: start: 20101006
  4. ASPIRIN [Concomitant]
     Dosage: 1DF}100MG

REACTIONS (1)
  - LIVER FUNCTION TEST ABNORMAL [None]
